FAERS Safety Report 18850863 (Version 1)
Quarter: 2021Q1

REPORT INFORMATION
  Report Type: Spontaneous
  Country: DE (occurrence: DE)
  Receive Date: 20210205
  Receipt Date: 20210205
  Transmission Date: 20210420
  Serious: Yes (Hospitalization, Other)
  Sender: FDA-Public Use
  Company Number: DE-SA-2021SA033755

PATIENT
  Age: 51 Year
  Sex: Male
  Weight: 90 kg

DRUGS (20)
  1. HEPARIN [Concomitant]
     Active Substance: HEPARIN SODIUM
  2. PREDNISOLON [PREDNISOLONE] [Concomitant]
     Active Substance: PREDNISOLONE
     Dosage: 12.5 MG, QD
     Dates: start: 20210121
  3. PREDNISOLON [PREDNISOLONE] [Concomitant]
     Active Substance: PREDNISOLONE
     Dosage: 5 MG, QD
  4. PREDNISOLON [PREDNISOLONE] [Concomitant]
     Active Substance: PREDNISOLONE
     Dosage: 7.5 MG
  5. PANTOZOLE [Concomitant]
     Active Substance: PANTOPRAZOLE SODIUM
     Dosage: 40 MG
  6. COTRIM [Concomitant]
     Active Substance: SULFAMETHOXAZOLE\TRIMETHOPRIM
     Dosage: 960 MG, EVERY SECOND DAY
  7. CONCOR [Concomitant]
     Active Substance: BISOPROLOL FUMARATE
     Dosage: 2.5 MG, QD
  8. CABLIVI [Suspect]
     Active Substance: CAPLACIZUMAB-YHDP
     Indication: THROMBOTIC THROMBOCYTOPENIC PURPURA
     Dosage: 10 MG, QD, IV/SC
     Dates: start: 20201110, end: 20201210
  9. CORTISONE [Concomitant]
     Active Substance: CORTISONE
  10. RIXATHON [Concomitant]
     Active Substance: RITUXIMAB
     Dosage: 780 MG, QD
     Dates: start: 20201209, end: 20201209
  11. RIXATHON [Concomitant]
     Active Substance: RITUXIMAB
     Indication: ACUTE KIDNEY INJURY
     Dosage: 750 MG
     Dates: start: 20201118, end: 20201118
  12. PREDNISOLON [PREDNISOLONE] [Concomitant]
     Active Substance: PREDNISOLONE
     Dosage: 20 MG,QD
     Dates: start: 20201224
  13. POTASSIUM [Concomitant]
     Active Substance: POTASSIUM
     Dosage: UNK UNK, TID
  14. PREDNISOLON [PREDNISOLONE] [Concomitant]
     Active Substance: PREDNISOLONE
     Dosage: 15 MG, QD
     Dates: start: 20200107
  15. DEKRISTOL [Concomitant]
     Active Substance: CHOLECALCIFEROL
     Dosage: 20000 UNK
  16. RIXATHON [Concomitant]
     Active Substance: RITUXIMAB
     Dosage: 780 MG, QD
     Dates: start: 20201125, end: 20201125
  17. RIXATHON [Concomitant]
     Active Substance: RITUXIMAB
     Dosage: 770 MG, QD
     Dates: start: 20201203, end: 20201203
  18. PREDNISOLON [PREDNISOLONE] [Concomitant]
     Active Substance: PREDNISOLONE
     Indication: EMBOLISM
     Dosage: 25 MG, QD
     Dates: start: 20201210
  19. PREDNISOLON [PREDNISOLONE] [Concomitant]
     Active Substance: PREDNISOLONE
     Dosage: 10 MG, QD
     Dates: start: 20210204
  20. VITAMIN B1 [Concomitant]
     Active Substance: THIAMINE HYDROCHLORIDE
     Dosage: 1/2

REACTIONS (2)
  - Heparin-induced thrombocytopenia [Recovered/Resolved]
  - Platelet count decreased [Recovered/Resolved]

NARRATIVE: CASE EVENT DATE: 20201124
